FAERS Safety Report 7521841-8 (Version None)
Quarter: 2011Q2

REPORT INFORMATION
  Report Type: 
  Country: None (occurrence: None)
  Receive Date: 20110603
  Receipt Date: 20110526
  Transmission Date: 20111010
  Serious: Yes (Death, Hospitalization, Other)
  Sender: FDA-Public Use
  Company Number: US-GENZYME-THYM-1002493

PATIENT
  Age: 62 Year
  Sex: Female

DRUGS (5)
  1. MYCOPHENOLATE MEFETIL [Suspect]
     Indication: IMMUNOSUPPRESSANT DRUG THERAPY
  2. THYMOGLOBULIN [Suspect]
     Indication: LIVER TRANSPLANT REJECTION
     Route: 042
  3. AMPHOTERICIN B [Suspect]
     Indication: FUNGAL OESOPHAGITIS
     Dosage: 5 MG/KG, UNK
  4. TACROLIMUS [Suspect]
     Indication: IMMUNOSUPPRESSANT DRUG THERAPY
  5. PREDNISONE [Suspect]
     Indication: IMMUNOSUPPRESSANT DRUG THERAPY

REACTIONS (6)
  - SEPSIS [None]
  - FUNGAL OESOPHAGITIS [None]
  - MULTI-ORGAN FAILURE [None]
  - HERPES SIMPLEX [None]
  - CYTOMEGALOVIRUS OESOPHAGITIS [None]
  - LIVER TRANSPLANT REJECTION [None]
